FAERS Safety Report 4994451-4 (Version None)
Quarter: 2006Q1

REPORT INFORMATION
  Report Type: 
  Country: None (occurrence: None)
  Receive Date: 20060313
  Receipt Date: 20051227
  Transmission Date: 20060701
  Serious: No
  Sender: FDA-Public Use
  Company Number: 2005-BP-20568BP

PATIENT
  Age: 84 Year
  Sex: Female

DRUGS (8)
  1. SPIRIVA [Suspect]
     Indication: CHRONIC OBSTRUCTIVE PULMONARY DISEASE
     Dosage: 18 MCG (18 MCG), IH
     Route: 055
     Dates: start: 20050609, end: 20051110
  2. MONISTAT 7 [Suspect]
     Dates: start: 20051111, end: 20051111
  3. ATENOLOL [Concomitant]
  4. LASIX [Concomitant]
  5. POTASSIUM (K) (POTASSIUM) [Concomitant]
  6. MAXAIR [Concomitant]
  7. PREVACID [Concomitant]
  8. SPIRIVA [Suspect]

REACTIONS (3)
  - VAGINAL BURNING SENSATION [None]
  - VAGINAL DISCHARGE [None]
  - VAGINAL ODOUR [None]
